FAERS Safety Report 7550721-7 (Version None)
Quarter: 2011Q2

REPORT INFORMATION
  Report Type: 
  Country: None (occurrence: None)
  Receive Date: 20110616
  Receipt Date: 20101013
  Transmission Date: 20111010
  Serious: Yes (Other)
  Sender: FDA-Public Use
  Company Number: DE-JNJFOC-20101006688

PATIENT
  Sex: Female
  Weight: 174 kg

DRUGS (5)
  1. BISOPROLOL FUMARATE [Concomitant]
     Route: 065
  2. OMEPRAZOLE [Concomitant]
     Route: 065
  3. IBUPROFEN [Concomitant]
     Route: 065
  4. TAPENTADOL [Suspect]
     Indication: ILL-DEFINED DISORDER
     Route: 048
     Dates: start: 20101009, end: 20101009
  5. TRIAMPUR COMPOSITUM [Concomitant]
     Route: 065

REACTIONS (2)
  - INFREQUENT BOWEL MOVEMENTS [None]
  - URINARY RETENTION [None]
